FAERS Safety Report 7148069-8 (Version None)
Quarter: 2010Q4

REPORT INFORMATION
  Report Type: 
  Country: None (occurrence: None)
  Receive Date: 20101209
  Receipt Date: 20101126
  Transmission Date: 20110411
  Serious: Yes (Hospitalization, Other)
  Sender: FDA-Public Use
  Company Number: FR-ELI_LILLY_AND_COMPANY-FR201011007119

PATIENT
  Age: 68 Year
  Sex: Female

DRUGS (3)
  1. ZYPREXA [Suspect]
     Dosage: 25 MG, DAILY (1/D)
     Route: 048
     Dates: start: 20100101, end: 20101101
  2. ZYPREXA [Suspect]
     Dosage: UNK, UNK
     Dates: start: 20101101
  3. ABILIFY [Concomitant]
     Dosage: 15 MG, DAILY (1/D)
     Route: 048

REACTIONS (4)
  - HYPERTHYROIDISM [None]
  - NON-SECRETORY ADENOMA OF PITUITARY [None]
  - OVERDOSE [None]
  - WEIGHT DECREASED [None]
